FAERS Safety Report 9337973 (Version 1)
Quarter: 2013Q2

REPORT INFORMATION
  Report Type: Report from Study
  Country: JP (occurrence: JP)
  Receive Date: 20130609
  Receipt Date: 20130609
  Transmission Date: 20140414
  Serious: Yes (Other)
  Sender: FDA-Public Use
  Company Number: JP-SANOFI-AVENTIS-2013SA057807

PATIENT
  Sex: 0

DRUGS (2)
  1. CLOPIDOGREL BISULFATE [Suspect]
     Indication: CEREBRAL INFARCTION
     Dosage: LOADING DOSE
     Route: 065
  2. CLOPIDOGREL BISULFATE [Suspect]
     Indication: CEREBRAL INFARCTION
     Route: 065

REACTIONS (1)
  - Renal impairment [Unknown]
